FAERS Safety Report 8935788 (Version 1)
Quarter: 2012Q4

REPORT INFORMATION
  Report Type: 
  Country: GB (occurrence: GB)
  Receive Date: 20121130
  Receipt Date: 20121130
  Transmission Date: 20130627
  Serious: Yes (Death, Hospitalization, Other)
  Sender: FDA-Public Use
  Company Number: GB-B.I. PHARMACEUTICALS,INC./RIDGEFIELD-2012-UK-01823UK

PATIENT
  Age: 75 Year
  Sex: Female

DRUGS (15)
  1. DABIGATRAN [Suspect]
     Indication: ATRIAL FIBRILLATION
     Dosage: 220 mg
     Route: 048
     Dates: start: 20120907, end: 20121101
  2. AMITRIPTYLINE [Concomitant]
  3. DIGOXIN [Concomitant]
  4. FUROSEMIDE [Concomitant]
  5. LANSOPRAZOLE [Concomitant]
  6. LEVOTHYROXINE [Concomitant]
  7. LISINOPRIL [Concomitant]
  8. MORPHINE SULPHATE [Concomitant]
  9. MOVELAT [Concomitant]
  10. NICORANDIL [Concomitant]
  11. PARACETAMOL [Concomitant]
  12. SALBUTAMOL [Concomitant]
  13. SIMVASTATIN [Concomitant]
  14. TIOTROPIUM [Concomitant]
  15. VERAPAMIL [Concomitant]

REACTIONS (2)
  - Sepsis [Fatal]
  - Renal failure acute [Not Recovered/Not Resolved]
